FAERS Safety Report 11706905 (Version 1)
Quarter: 2015Q4

REPORT INFORMATION
  Report Type: Spontaneous
  Country: US (occurrence: US)
  Receive Date: 20151104
  Receipt Date: 20151104
  Transmission Date: 20160304
  Serious: No
  Sender: FDA-Public Use
  Company Number: US-ELI_LILLY_AND_COMPANY-US201011007267

PATIENT
  Age: 69 Year
  Sex: Female

DRUGS (8)
  1. FORTEO [Suspect]
     Active Substance: TERIPARATIDE
     Dosage: 20 UG, DAILY (1/D)
  2. FORTEO [Suspect]
     Active Substance: TERIPARATIDE
     Dosage: 20 UG, DAILY (1/D)
     Route: 058
  3. FORTEO [Suspect]
     Active Substance: TERIPARATIDE
     Dosage: 20 UG, QD
  4. FORTEO [Suspect]
     Active Substance: TERIPARATIDE
     Dosage: 20 UG, DAILY (1/D)
     Route: 058
  5. THYROID THERAPY [Concomitant]
     Active Substance: UNSPECIFIED INGREDIENT
  6. FORTEO [Suspect]
     Active Substance: TERIPARATIDE
     Dosage: 20 UG, DAILY (1/D)
  7. CALTRATE D/00944201/ [Concomitant]
     Dosage: 1 DF, QD
  8. FORTEO [Suspect]
     Active Substance: TERIPARATIDE
     Indication: OSTEOPOROSIS
     Dosage: 20 UG, DAILY (1/D)
     Route: 058
     Dates: start: 20101027

REACTIONS (18)
  - Faeces hard [Unknown]
  - Blood calcium decreased [Unknown]
  - Chills [Unknown]
  - Injection site haemorrhage [Unknown]
  - Myalgia [Unknown]
  - Stomatitis [Unknown]
  - Dizziness [Unknown]
  - Blood calcium increased [Unknown]
  - Pyrexia [Not Recovered/Not Resolved]
  - Nausea [Unknown]
  - Oral discomfort [Not Recovered/Not Resolved]
  - Swollen tongue [Unknown]
  - Pain in extremity [Unknown]
  - Constipation [Unknown]
  - Facial pain [Unknown]
  - Dental care [Unknown]
  - Vitamin D decreased [Unknown]
  - Pain [Unknown]

NARRATIVE: CASE EVENT DATE: 201104
